FAERS Safety Report 9933248 (Version 2)
Quarter: 2014Q1

REPORT INFORMATION
  Report Type: Report from Study
  Country: US (occurrence: US)
  Receive Date: 20140228
  Receipt Date: 20140228
  Transmission Date: 20141002
  Serious: No
  Sender: FDA-Public Use
  Company Number: US-MYLANLABS-2013S1001977

PATIENT
  Age: 27 Year
  Sex: Female

DRUGS (4)
  1. AMNESTEEM CAPSULES [Suspect]
     Indication: ACNE CYSTIC
     Route: 048
     Dates: end: 20130117
  2. CLARAVIS [Suspect]
     Indication: ACNE CYSTIC
  3. CLARAVIS [Suspect]
     Indication: ACNE CYSTIC
     Dates: start: 20121017
  4. ORAL CONTRACEPTIVE NOS [Concomitant]
     Route: 048

REACTIONS (3)
  - Myalgia [Not Recovered/Not Resolved]
  - Toothache [Not Recovered/Not Resolved]
  - Eczema [Not Recovered/Not Resolved]
